FAERS Safety Report 8307093-X (Version None)
Quarter: 2012Q2

REPORT INFORMATION
  Report Type: 
  Country: None (occurrence: None)
  Receive Date: 20120424
  Receipt Date: 20120420
  Transmission Date: 20120825
  Serious: Yes (Other)
  Sender: FDA-Public Use
  Company Number: US-PFIZER INC-2012098499

PATIENT
  Sex: Female
  Weight: 73.9 kg

DRUGS (2)
  1. LYRICA [Suspect]
     Indication: FIBROMYALGIA
     Dosage: 100 MG, 2X/DAY
     Route: 048
     Dates: start: 20100101, end: 20120101
  2. LYRICA [Suspect]
     Dosage: 100 MG, 2X/DAY
     Route: 048
     Dates: start: 20120201

REACTIONS (3)
  - RHEUMATOID ARTHRITIS [None]
  - INFLUENZA [None]
  - GASTROENTERITIS VIRAL [None]
